FAERS Safety Report 8573014-8 (Version None)
Quarter: 2012Q3

REPORT INFORMATION
  Report Type: 
  Country: None (occurrence: None)
  Receive Date: 20120806
  Receipt Date: 20120727
  Transmission Date: 20120928
  Serious: Yes (Other)
  Sender: FDA-Public Use
  Company Number: US-CELGENEUS-163-21880-12073269

PATIENT
  Sex: Female
  Weight: 57.9 kg

DRUGS (1)
  1. REVLIMID [Suspect]
     Indication: MULTIPLE MYELOMA
     Dosage: 5 MILLIGRAM
     Route: 048
     Dates: start: 20111209

REACTIONS (4)
  - RENAL DISORDER [None]
  - WEIGHT DECREASED [None]
  - TACHYCARDIA [None]
  - DIARRHOEA [None]
